FAERS Safety Report 8526425 (Version 4)
Quarter: 2014Q1

REPORT INFORMATION
  Report Type: Spontaneous
  Country: US (occurrence: US)
  Receive Date: 20120423
  Receipt Date: 20140303
  Transmission Date: 20141002
  Serious: Yes (Hospitalization, Other)
  Sender: FDA-Public Use
  Company Number: US-US-EMD SERONO, INC.-7126718

PATIENT
  Sex: Female
  Weight: 77 kg

DRUGS (6)
  1. REBIF [Suspect]
     Indication: MULTIPLE SCLEROSIS
     Route: 058
     Dates: start: 20030526
  2. STALEVO [Concomitant]
     Indication: PARKINSON^S DISEASE
  3. WELLBUTRIN [Concomitant]
     Indication: DEPRESSION
  4. PAXIL [Concomitant]
     Indication: DEPRESSION
  5. XANAX [Concomitant]
     Indication: PRODUCT USED FOR UNKNOWN INDICATION
  6. ARTANE [Concomitant]
     Indication: PARKINSON^S DISEASE

REACTIONS (9)
  - Arthropathy [Recovered/Resolved]
  - Intraductal proliferative breast lesion [Recovered/Resolved]
  - Parkinson^s disease [Not Recovered/Not Resolved]
  - Cystitis [Unknown]
  - Constipation [Not Recovered/Not Resolved]
  - Nausea [Not Recovered/Not Resolved]
  - Fall [Recovered/Resolved]
  - Gait disturbance [Unknown]
  - Red blood cell count decreased [Unknown]
